FAERS Safety Report 10446966 (Version 3)
Quarter: 2015Q1

REPORT INFORMATION
  Report Type: Spontaneous
  Country: US (occurrence: US)
  Receive Date: 20140911
  Receipt Date: 20150129
  Transmission Date: 20150720
  Serious: Yes (Hospitalization, Other)
  Sender: FDA-Public Use
  Company Number: US-009507513-1409USA004501

PATIENT
  Sex: Female
  Weight: 126.8 kg

DRUGS (2)
  1. JANUVIA [Suspect]
     Active Substance: SITAGLIPTIN PHOSPHATE
     Indication: TYPE 2 DIABETES MELLITUS
     Dosage: 100 MG, QD
     Route: 048
     Dates: start: 20080729, end: 20090119
  2. BYETTA [Suspect]
     Active Substance: EXENATIDE
     Indication: TYPE 2 DIABETES MELLITUS
     Dosage: 250 MCG/ML 1.2 ML DAILY
     Route: 058
     Dates: start: 200801, end: 200803

REACTIONS (16)
  - Cholecystectomy [Unknown]
  - Spleen operation [Unknown]
  - Laparotomy [Unknown]
  - Pancreatitis chronic [Not Recovered/Not Resolved]
  - Abdominal adhesions [Unknown]
  - Pancreatic neoplasm [Unknown]
  - Myocardial infarction [Unknown]
  - Gastritis [Unknown]
  - Pancreatectomy [Unknown]
  - Hysterectomy [Unknown]
  - Chest pain [Unknown]
  - Lymphadenectomy [Unknown]
  - Myocardial infarction [Unknown]
  - Cardiac failure congestive [Unknown]
  - Splenectomy [Unknown]
  - Type 1 diabetes mellitus [Unknown]

NARRATIVE: CASE EVENT DATE: 200901
